FAERS Safety Report 8843557 (Version 1)
Quarter: 2012Q4

REPORT INFORMATION
  Report Type: 
  Country: US (occurrence: US)
  Receive Date: 20121016
  Receipt Date: 20121016
  Transmission Date: 20130627
  Serious: Yes (Other)
  Sender: FDA-Public Use
  Company Number: PHHY2012US089846

PATIENT
  Age: 79 Year
  Sex: Female

DRUGS (2)
  1. ASCRIPTIN BUFFERED CAPS UNKNOWN FORMULA [Suspect]
     Dosage: 1 DF, UNK
     Route: 048
     Dates: start: 2003
  2. GABAPENTIN [Concomitant]

REACTIONS (6)
  - Meniscus injury [Recovered/Resolved]
  - Road traffic accident [Recovered/Resolved]
  - Intervertebral disc protrusion [Not Recovered/Not Resolved]
  - Nerve injury [Not Recovered/Not Resolved]
  - Haemorrhage [Recovered/Resolved]
  - Incorrect drug administration duration [Unknown]
